FAERS Safety Report 7787238-0 (Version None)
Quarter: 2011Q3

REPORT INFORMATION
  Report Type: 
  Country: None (occurrence: None)
  Receive Date: 20110929
  Receipt Date: 20110920
  Transmission Date: 20111222
  Serious: No
  Sender: FDA-Public Use
  Company Number: FR-ACTELION-A-CH2011-50518

PATIENT
  Sex: Female

DRUGS (2)
  1. VENTAVIS [Concomitant]
     Indication: MATERNAL EXPOSURE DURING PREGNANCY
     Dosage: UNK
     Route: 064
  2. TRACLEER [Suspect]
     Indication: MATERNAL EXPOSURE DURING PREGNANCY
     Dosage: 125 MG, BID
     Route: 064
     Dates: start: 20100101, end: 20100501

REACTIONS (3)
  - NORMAL NEWBORN [None]
  - CAESAREAN SECTION [None]
  - MATERNAL EXPOSURE DURING PREGNANCY [None]
